FAERS Safety Report 6091029-9 (Version None)
Quarter: 2009Q1

REPORT INFORMATION
  Report Type: 
  Country: None (occurrence: None)
  Receive Date: 20090225
  Receipt Date: 20090210
  Transmission Date: 20090719
  Serious: Yes (Other)
  Sender: FDA-Public Use
  Company Number: PHHY2009ZA04586

PATIENT

DRUGS (1)
  1. VOLTAREN [Suspect]
     Dosage: UNK

REACTIONS (1)
  - CREATINE URINE DECREASED [None]
